FAERS Safety Report 9657786 (Version 2)
Quarter: 2013Q4

REPORT INFORMATION
  Report Type: Spontaneous
  Country: GB (occurrence: None)
  Receive Date: 20131029
  Receipt Date: 20131212
  Transmission Date: 20140711
  Serious: Yes (Hospitalization)
  Sender: FDA-Public Use
  Company Number: 1975733

PATIENT
  Age: 60 Year
  Sex: Male
  Weight: 103 kg

DRUGS (3)
  1. (GEMCITABINE HYDROCHLORIDE) [Suspect]
     Indication: PRODUCT USED FOR UNKNOWN INDICATION
     Dosage: (2 DAY)
     Dates: start: 20130613, end: 20130919
  2. CISPLATIN [Suspect]
     Indication: PRODUCT USED FOR UNKNOWN INDICATION
     Dosage: 154 MG MILLIGRAM(S)
     Dates: start: 20130613, end: 20130919
  3. TEMSIROLIMUS [Suspect]
     Indication: PRODUCT USED FOR UNKNOWN INDICATION
     Dosage: 10 MG MILLIGRAM(S) , UNKNOWN
     Dates: start: 20130704, end: 20130912

REACTIONS (3)
  - Neutropenic sepsis [None]
  - Febrile neutropenia [None]
  - White blood cell count decreased [None]
